FAERS Safety Report 23875772 (Version 3)
Quarter: 2025Q1

REPORT INFORMATION
  Report Type: Spontaneous
  Country: US (occurrence: US)
  Receive Date: 20240520
  Receipt Date: 20250307
  Transmission Date: 20250409
  Serious: Yes (Other)
  Sender: SANOFI AVENTIS
  Company Number: US-SA-SAC20240514000093

PATIENT
  Age: 54 Year
  Sex: Female
  Weight: 83.91 kg

DRUGS (14)
  1. DUPIXENT [Suspect]
     Active Substance: DUPILUMAB
     Indication: Nasal polyps
     Dosage: 300MG, QOW
     Route: 058
     Dates: end: 2024
  2. DUPIXENT [Suspect]
     Active Substance: DUPILUMAB
     Dosage: 300MG, QOW
     Route: 058
     Dates: end: 202502
  3. IRBESARTAN [Concomitant]
     Active Substance: IRBESARTAN
  4. METFORMIN HYDROCHLORIDE [Concomitant]
     Active Substance: METFORMIN HYDROCHLORIDE
  5. INSULIN ASPART [Concomitant]
     Active Substance: INSULIN ASPART
  6. TRESIBA [Concomitant]
     Active Substance: INSULIN DEGLUDEC
  7. FAMOTIDINE [Concomitant]
     Active Substance: FAMOTIDINE
  8. MONJUVI [Concomitant]
     Active Substance: TAFASITAMAB-CXIX
  9. FLONASE ALLERGY RELIEF [Concomitant]
     Active Substance: FLUTICASONE PROPIONATE
  10. ALBUTEROL SULFATE [Concomitant]
     Active Substance: ALBUTEROL SULFATE
  11. XYZAL [Concomitant]
     Active Substance: LEVOCETIRIZINE DIHYDROCHLORIDE
  12. LEVOTHYROXINE SODIUM [Concomitant]
     Active Substance: LEVOTHYROXINE SODIUM
  13. HYDROCHLOROTHIAZIDE [Concomitant]
     Active Substance: HYDROCHLOROTHIAZIDE
  14. ALBUTEROL SULFATE [Concomitant]
     Active Substance: ALBUTEROL SULFATE

REACTIONS (6)
  - Cerebrovascular accident [Unknown]
  - Oropharyngeal discomfort [Unknown]
  - Heart rate decreased [Unknown]
  - Dyspnoea [Unknown]
  - Nasal obstruction [Unknown]
  - Dizziness [Unknown]

NARRATIVE: CASE EVENT DATE: 20240408
